FAERS Safety Report 6445753-6 (Version None)
Quarter: 2009Q4

REPORT INFORMATION
  Report Type: 
  Country: None (occurrence: None)
  Receive Date: 20091119
  Receipt Date: 20091108
  Transmission Date: 20100525
  Serious: Yes (Hospitalization)
  Sender: FDA-Public Use
  Company Number: IT-RANBAXY-2009RR-29179

PATIENT
  Sex: Male

DRUGS (2)
  1. NIMESULIDE (AULIN) [Suspect]
  2. AMOXICILLIN [Suspect]

REACTIONS (3)
  - ERYTHEMA [None]
  - OEDEMA [None]
  - PARAESTHESIA [None]
